FAERS Safety Report 4947405-8 (Version None)
Quarter: 2006Q1

REPORT INFORMATION
  Report Type: 
  Country: None (occurrence: None)
  Receive Date: 20060317
  Receipt Date: 20060309
  Transmission Date: 20060701
  Serious: Yes (Hospitalization)
  Sender: FDA-Public Use
  Company Number: JP-MERCK-0603USA02072

PATIENT
  Age: 86 Year
  Sex: Female

DRUGS (15)
  1. ZOCOR [Suspect]
     Indication: HYPERLIPIDAEMIA
     Route: 048
     Dates: start: 19960101, end: 20060208
  2. ENALAPRIL MALEATE [Concomitant]
     Route: 048
  3. AMLODIPINE BESYLATE [Concomitant]
     Route: 048
  4. TICLOPIDINE HYDROCHLORIDE [Concomitant]
     Route: 048
  5. BROTIZOLAM [Concomitant]
     Route: 048
  6. OMEPRAZOLE [Concomitant]
     Route: 065
  7. CALCIUM POLYSTYRENE SULFONATE [Concomitant]
     Route: 048
  8. DEXAMETHASONE [Concomitant]
     Route: 061
  9. ELECTROLYTES (UNSPECIFIED) AND SODIUM LACTATE [Concomitant]
     Route: 042
  10. [THERAPY UNSPECIFIED] [Concomitant]
     Route: 065
  11. FAMOTIDINE [Concomitant]
     Route: 051
  12. SODIUM CHLORIDE [Concomitant]
     Route: 042
  13. VITAMEDIN [Concomitant]
     Route: 042
  14. ASCORBIC ACID [Concomitant]
     Route: 042
  15. SULBACTAM SODIUM [Concomitant]
     Route: 042

REACTIONS (3)
  - ASTHENIA [None]
  - BLOOD CREATINE PHOSPHOKINASE INCREASED [None]
  - CHOLANGITIS [None]
